FAERS Safety Report 7505961-X (Version None)
Quarter: 2011Q2

REPORT INFORMATION
  Report Type: 
  Country: None (occurrence: None)
  Receive Date: 20110526
  Receipt Date: 20110512
  Transmission Date: 20111010
  Serious: Yes (Other)
  Sender: FDA-Public Use
  Company Number: PHHY2011JP41077

PATIENT
  Sex: Male

DRUGS (3)
  1. OLMESARTAN MEDOXOMIL [Concomitant]
     Route: 048
  2. EPLERENONE [Concomitant]
  3. RASILEZ [Suspect]
     Dosage: UNK UKN, UNK
     Route: 048

REACTIONS (2)
  - HYPERKALAEMIA [None]
  - RENAL FAILURE [None]
